FAERS Safety Report 14231927 (Version 1)
Quarter: 2017Q4

REPORT INFORMATION
  Report Type: Spontaneous
  Country: CA (occurrence: CA)
  Receive Date: 20171128
  Receipt Date: 20171128
  Transmission Date: 20180321
  Serious: Yes (Other)
  Sender: FDA-Public Use
  Company Number: CA-MYLANLABS-2017M1074127

PATIENT
  Age: 86 Year
  Sex: Male

DRUGS (6)
  1. PREDNISONE. [Suspect]
     Active Substance: PREDNISONE
     Dosage: 20MG/DAY
     Route: 065
  2. MYCOPHENOLATE MOFETIL MYLAN [Suspect]
     Active Substance: MYCOPHENOLATE MOFETIL
     Indication: PEMPHIGOID
     Dosage: 1G/D
     Route: 065
  3. PREDNISONE. [Suspect]
     Active Substance: PREDNISONE
     Indication: PEMPHIGOID
     Dosage: 30MG/DAY, THEN INCREASED TO 50MG/DAY, THEN INCREASED TO 60MG/DAY, THEN TAPERED TO 20MG OVER 4 MONTHS
     Route: 065
  4. PREDNISONE. [Suspect]
     Active Substance: PREDNISONE
     Dosage: 50MG/DAY, THEN INCREASED TO 60MG/DAY, THEN TAPERED TO 20MG OVER 4 MONTHS
     Route: 065
  5. CLOBETASOL [Suspect]
     Active Substance: CLOBETASOL
     Indication: PEMPHIGOID
     Dosage: UNK
     Route: 061
  6. PREDNISONE. [Suspect]
     Active Substance: PREDNISONE
     Dosage: 60MG/DAY, THEN TAPERED TO 20MG OVER 4 MONTHS
     Route: 065

REACTIONS (1)
  - Kaposi^s sarcoma [Unknown]
